FAERS Safety Report 9713743 (Version 1)
Quarter: 2013Q4

REPORT INFORMATION
  Report Type: Spontaneous
  Country: BE (occurrence: BE)
  Receive Date: 20131126
  Receipt Date: 20131126
  Transmission Date: 20140711
  Serious: Yes (Hospitalization)
  Sender: FDA-Public Use
  Company Number: BE-PFIZER INC-2013332133

PATIENT
  Age: 43 Year
  Sex: Female
  Weight: 100 kg

DRUGS (8)
  1. ECALTA [Suspect]
     Indication: CANDIDA INFECTION
     Dosage: 100 MG, 1X/DAY
     Route: 042
     Dates: start: 20131017, end: 20131022
  2. MERONEM [Concomitant]
     Dosage: 1 G, UNK
     Route: 042
  3. PERFUSALGAN [Concomitant]
     Dosage: 1 G, UNK
     Route: 042
  4. MORPHINE [Concomitant]
     Dosage: 48 MG, DAILY
     Route: 042
  5. ACTRAPID [Concomitant]
     Indication: HYPERGLYCAEMIA
     Dosage: UNK
     Route: 042
  6. RYDENE [Concomitant]
     Indication: HYPERTENSION
     Dosage: UNK
     Route: 042
  7. CLEXANE [Concomitant]
     Dosage: 40 MG, UNK
     Route: 058
  8. INSULATARD [Concomitant]
     Dosage: 20 IU, IN THE EVENING
     Route: 042

REACTIONS (4)
  - Respiratory failure [Recovering/Resolving]
  - Hypertension [Recovering/Resolving]
  - Drug reaction with eosinophilia and systemic symptoms [Recovering/Resolving]
  - Hypotension [Recovering/Resolving]
